FAERS Safety Report 4908965-6 (Version None)
Quarter: 2006Q1

REPORT INFORMATION
  Report Type: 
  Country: None (occurrence: None)
  Receive Date: 20060210
  Receipt Date: 20060210
  Transmission Date: 20060701
  Serious: Yes (Other)
  Sender: FDA-Public Use
  Company Number: None

PATIENT
  Age: 24 Year
  Sex: Female
  Weight: 52.1637 kg

DRUGS (2)
  1. RITALIN [Suspect]
     Indication: ATTENTION DEFICIT/HYPERACTIVITY DISORDER
     Dosage: 10 MG QD PO
     Route: 048
     Dates: start: 20040101, end: 20050530
  2. RITALIN [Suspect]
     Dosage: 5 MG QD PO
     Route: 048
     Dates: start: 20040101, end: 20050530

REACTIONS (4)
  - CARDIAC DISORDER [None]
  - HEART RATE IRREGULAR [None]
  - SYNCOPE [None]
  - WOLFF-PARKINSON-WHITE SYNDROME [None]
